FAERS Safety Report 10414796 (Version 3)
Quarter: 2014Q4

REPORT INFORMATION
  Report Type: Spontaneous
  Country: JP (occurrence: JP)
  Receive Date: 20140828
  Receipt Date: 20141222
  Transmission Date: 20150528
  Serious: Yes (Hospitalization)
  Sender: FDA-Public Use
  Company Number: JP-009507513-1408JPN013503

PATIENT
  Age: 71 Year
  Sex: Female
  Weight: 40 kg

DRUGS (5)
  1. GASMOTIN [Concomitant]
     Active Substance: MOSAPRIDE CITRATE
     Dosage: DAILY DOSAGE UNKNOWN
     Route: 048
  2. BLOPRESS [Concomitant]
     Active Substance: CANDESARTAN CILEXETIL
     Dosage: DAILY DOSAGE UNKNOWN
     Route: 048
  3. FOSAMAX [Suspect]
     Active Substance: ALENDRONATE SODIUM
     Indication: OSTEOPOROSIS
     Dosage: DAILY DOSAGE UNKNOWN
     Route: 048
     Dates: start: 201103, end: 201209
  4. OMEPRAL [Concomitant]
     Active Substance: OMEPRAZOLE
     Dosage: DAILY DOSAGE UNKNOWN
     Route: 065
  5. TERNELIN [Concomitant]
     Active Substance: TIZANIDINE
     Dosage: DAILY DOSAGE UNKNOWN
     Route: 048

REACTIONS (1)
  - Osteomyelitis [Recovered/Resolved]

NARRATIVE: CASE EVENT DATE: 201108
